FAERS Safety Report 21844939 (Version 2)
Quarter: 2023Q1

REPORT INFORMATION
  Report Type: Spontaneous
  Country: US (occurrence: US)
  Receive Date: 20230110
  Receipt Date: 20230126
  Transmission Date: 20230417
  Serious: No
  Sender: FDA-Public Use
  Company Number: US-BIOMARINAP-US-2023-147874

PATIENT

DRUGS (1)
  1. VIMIZIM [Suspect]
     Active Substance: ELOSULFASE ALFA
     Indication: Product used for unknown indication
     Dosage: 42 MILLIGRAM, QW
     Route: 042

REACTIONS (4)
  - Nasopharyngitis [Unknown]
  - Nausea [Unknown]
  - Pain [Unknown]
  - Vascular access site pain [Not Recovered/Not Resolved]

NARRATIVE: CASE EVENT DATE: 20230103
